FAERS Safety Report 9014759 (Version 1)
Quarter: 2013Q1

REPORT INFORMATION
  Report Type: Spontaneous
  Country: US (occurrence: US)
  Receive Date: 20130115
  Receipt Date: 20130115
  Transmission Date: 20140127
  Serious: Yes (Other)
  Sender: FDA-Public Use
  Company Number: US-TEVA-379841USA

PATIENT
  Sex: Female

DRUGS (1)
  1. TRIAMCINOLONE [Suspect]
     Dosage: 22MCG/17G
     Route: 045
     Dates: start: 201208

REACTIONS (13)
  - Withdrawal syndrome [Unknown]
  - Activities of daily living impaired [Unknown]
  - Arthralgia [Unknown]
  - Myalgia [Unknown]
  - Diarrhoea [Unknown]
  - Nausea [Unknown]
  - Pyrexia [Unknown]
  - Anxiety [Unknown]
  - Panic attack [Unknown]
  - Insomnia [Unknown]
  - Amenorrhoea [Unknown]
  - Gastrooesophageal reflux disease [Unknown]
  - Blood corticotrophin decreased [Unknown]
